FAERS Safety Report 7333574-1 (Version None)
Quarter: 2011Q1

REPORT INFORMATION
  Report Type: 
  Country: None (occurrence: None)
  Receive Date: 20110304
  Receipt Date: 20110222
  Transmission Date: 20110831
  Serious: Yes (Hospitalization)
  Sender: FDA-Public Use
  Company Number: NL-MERCK-1102NLD00015

PATIENT
  Age: 63 Year
  Sex: Female

DRUGS (6)
  1. GLIMEPIRIDE [Concomitant]
     Route: 048
     Dates: start: 20090101
  2. METFORMIN [Concomitant]
     Route: 048
     Dates: start: 20010101
  3. ENALAPRIL MALEATE [Concomitant]
     Route: 048
     Dates: start: 19990101
  4. COSOPT [Suspect]
     Route: 047
     Dates: end: 20100801
  5. ATORVASTATIN CALCIUM [Concomitant]
     Route: 065
     Dates: start: 19990101
  6. DORZOLAMIDE HYDROCHLORIDE [Suspect]
     Indication: INTRAOCULAR PRESSURE INCREASED
     Route: 047
     Dates: start: 20100825, end: 20110101

REACTIONS (2)
  - THERAPEUTIC RESPONSE UNEXPECTED WITH DRUG SUBSTITUTION [None]
  - INTRAOCULAR PRESSURE INCREASED [None]
